FAERS Safety Report 9185599 (Version 2)
Quarter: 2014Q1

REPORT INFORMATION
  Report Type: Spontaneous
  Country: US (occurrence: US)
  Receive Date: 20130325
  Receipt Date: 20140108
  Transmission Date: 20141002
  Serious: No
  Sender: FDA-Public Use
  Company Number: US-BIOGENIDEC-2013BI026679

PATIENT
  Age: 57 Year
  Sex: Female

DRUGS (1)
  1. AVONEX [Suspect]
     Indication: MULTIPLE SCLEROSIS
     Route: 030
     Dates: start: 19970616

REACTIONS (4)
  - Coordination abnormal [Recovered/Resolved]
  - Adverse drug reaction [Recovered/Resolved]
  - Injection site haemorrhage [Recovered/Resolved]
  - Upper limb fracture [Recovered/Resolved]
